FAERS Safety Report 20820014 (Version 1)
Quarter: 2022Q2

REPORT INFORMATION
  Report Type: Spontaneous
  Country: US (occurrence: None)
  Receive Date: 20220512
  Receipt Date: 20220512
  Transmission Date: 20220721
  Serious: Yes (Hospitalization)
  Sender: FDA-Public Use
  Company Number: None

PATIENT
  Sex: Female

DRUGS (20)
  1. AMBRISENTAN [Suspect]
     Active Substance: AMBRISENTAN
     Indication: Pulmonary sarcoidosis
     Dosage: TAKE 1 TABLET BY MOUTH DAILY FOR 1 MONTH THEN 10 MG DAILY?
     Route: 048
     Dates: start: 20220317
  2. ALLEGRA [Concomitant]
     Active Substance: FEXOFENADINE HYDROCHLORIDE
  3. AMIODARONE TAB [Concomitant]
  4. ATROVENT [Concomitant]
     Active Substance: IPRATROPIUM BROMIDE
  5. CALCIUM/D [Concomitant]
  6. DAPSONE TAB [Concomitant]
  7. ELIQUIS [Concomitant]
     Active Substance: APIXABAN
  8. FERROUS SULF TAB [Concomitant]
  9. FOLIC ACID [Concomitant]
     Active Substance: FOLIC ACID
  10. KLOR-CON M20 TAB [Concomitant]
  11. METFORMIN TAB [Concomitant]
  12. METHOTREXATE [Concomitant]
     Active Substance: METHOTREXATE
  13. METOPROLOL [Concomitant]
     Active Substance: METOPROLOL
  14. MYRBETRIQ TAB [Concomitant]
  15. NEXIUM CAP [Concomitant]
  16. OXYCODONE CAP [Concomitant]
  17. PREDNISONE [Concomitant]
     Active Substance: PREDNISONE
  18. SILDENAFIL [Concomitant]
     Active Substance: SILDENAFIL
  19. SILDENAFIL CITRATE [Concomitant]
     Active Substance: SILDENAFIL CITRATE
  20. TORSEMIDE TAB [Concomitant]

REACTIONS (4)
  - Oedema peripheral [None]
  - Fatigue [None]
  - Dizziness [None]
  - Breast pain [None]
